FAERS Safety Report 9374654 (Version 1)
Quarter: 2013Q2

REPORT INFORMATION
  Report Type: Spontaneous
  Country: US (occurrence: US)
  Receive Date: 20130628
  Receipt Date: 20130628
  Transmission Date: 20140414
  Serious: Yes (Other)
  Sender: FDA-Public Use
  Company Number: US-PFIZER INC-2013189598

PATIENT
  Age: 24 Year
  Sex: Female
  Weight: 66 kg

DRUGS (8)
  1. SUTENT [Suspect]
     Indication: ALVEOLAR SOFT PART SARCOMA
     Dosage: 37.5 MG,CYCLIC (ONE CAPSULE OF 25 MG AND ONE CAPSULE OF 12.5 MG)ONCE A DAY 6WEEKS ON AND 2 WEEKS OFF
     Route: 048
     Dates: start: 20110906, end: 20111114
  2. SUTENT [Suspect]
     Dosage: 25 MG, CYCLIC (ONCE DAY 5 TO 6 WEEKS ON AND 1 WEEK OFF)
     Route: 048
     Dates: end: 201210
  3. AMBIEN [Concomitant]
     Dosage: UNK
  4. CAMILA [Concomitant]
     Indication: CONTRACEPTION
     Dosage: UNK
     Route: 048
  5. SYNTHROID [Concomitant]
     Dosage: UNK
  6. ATIVAN [Concomitant]
     Dosage: UNK
  7. NEXIUM [Concomitant]
     Dosage: UNK
  8. OXYCODONE [Concomitant]
     Dosage: UNK

REACTIONS (23)
  - Off label use [Unknown]
  - Second primary malignancy [Unknown]
  - Hepatic neoplasm [Unknown]
  - Ulcer [Unknown]
  - Headache [Unknown]
  - Syncope [Unknown]
  - Cough [Unknown]
  - Nausea [Unknown]
  - Back pain [Unknown]
  - Hair colour changes [Unknown]
  - Malaise [Unknown]
  - Infection [Unknown]
  - Anger [Unknown]
  - Pain [Unknown]
  - Asthenia [Unknown]
  - Skin disorder [Unknown]
  - Nasopharyngitis [Unknown]
  - Diarrhoea [Unknown]
  - Fatigue [Unknown]
  - Lymphopenia [Unknown]
  - Monocyte count abnormal [Unknown]
  - White blood cell analysis abnormal [Unknown]
  - Blood thyroid stimulating hormone increased [Unknown]
